FAERS Safety Report 9333888 (Version 2)
Quarter: 2013Q2

REPORT INFORMATION
  Report Type: Spontaneous
  Country: JP (occurrence: None)
  Receive Date: 20130604
  Receipt Date: 20130619
  Transmission Date: 20140414
  Serious: Yes (Hospitalization, Other)
  Sender: FDA-Public Use
  Company Number: JP-ZYDUS-001242

PATIENT
  Age: 51 Year
  Sex: Male

DRUGS (1)
  1. PAROXETINE [Suspect]
     Indication: DEPRESSION

REACTIONS (3)
  - Idiopathic thrombocytopenic purpura [None]
  - Pulmonary alveolar haemorrhage [None]
  - No therapeutic response [None]
